FAERS Safety Report 18143265 (Version 1)
Quarter: 2020Q3

REPORT INFORMATION
  Report Type: Spontaneous
  Country: IT (occurrence: IT)
  Receive Date: 20200812
  Receipt Date: 20200812
  Transmission Date: 20201103
  Serious: Yes (Other)
  Sender: FDA-Public Use
  Company Number: IT-UCBSA-2020030421

PATIENT
  Age: 6 Month
  Sex: Female

DRUGS (10)
  1. LEVETIRACETAM. [Suspect]
     Active Substance: LEVETIRACETAM
     Indication: STATUS EPILEPTICUS
     Dosage: UNKNOWN DOSE
  2. MIDAZOLAM. [Suspect]
     Active Substance: MIDAZOLAM
     Indication: STATUS EPILEPTICUS
     Dosage: UNKNOWN DOSE
  3. CARBAMAZEPINE. [Suspect]
     Active Substance: CARBAMAZEPINE
     Indication: STATUS EPILEPTICUS
     Dosage: UNKNOWN DOSE
  4. PHENYTOIN. [Suspect]
     Active Substance: PHENYTOIN
     Indication: STATUS EPILEPTICUS
     Dosage: UNKNOWN DOSE
  5. PHENOBARBITAL. [Suspect]
     Active Substance: PHENOBARBITAL
     Indication: STATUS EPILEPTICUS
     Dosage: UNKNOWN DOSE
  6. PYRIDOXIN [Suspect]
     Active Substance: PYRIDOXINE
     Indication: STATUS EPILEPTICUS
     Dosage: UNKNOWN DOSE
  7. TOPIRAMATE. [Suspect]
     Active Substance: TOPIRAMATE
     Indication: STATUS EPILEPTICUS
     Dosage: UNKNOWN DOSE
  8. CLONAZEPAM. [Suspect]
     Active Substance: CLONAZEPAM
     Indication: STATUS EPILEPTICUS
     Dosage: UNKNOWN DOSE
  9. LEVETIRACETAM. [Suspect]
     Active Substance: LEVETIRACETAM
     Indication: OFF LABEL USE
  10. PERAMPANEL [Suspect]
     Active Substance: PERAMPANEL
     Indication: STATUS EPILEPTICUS
     Dosage: UNKNOWN DOSE

REACTIONS (3)
  - Multiple-drug resistance [Unknown]
  - Off label use [Unknown]
  - Status epilepticus [Unknown]
